FAERS Safety Report 5441088-9 (Version None)
Quarter: 2007Q3

REPORT INFORMATION
  Report Type: 
  Country: None (occurrence: None)
  Receive Date: 20070831
  Receipt Date: 20070821
  Transmission Date: 20080115
  Serious: Yes (Other)
  Sender: FDA-Public Use
  Company Number: GB-PFIZER INC-2007051601

PATIENT
  Sex: Female
  Weight: 69 kg

DRUGS (6)
  1. LYRICA [Suspect]
     Dates: start: 20060907, end: 20070619
  2. CLONAZEPAM [Concomitant]
     Indication: ANXIETY
     Route: 048
  3. CLONAZEPAM [Concomitant]
     Indication: POOR QUALITY SLEEP
  4. CO-DYDRAMOL [Concomitant]
     Indication: PAIN
     Route: 048
  5. CODEINE PHOSPHATE AND ACETAMINOPHEN [Concomitant]
  6. PARACETAMOL [Concomitant]

REACTIONS (8)
  - BLADDER SPHINCTER ATONY [None]
  - CHEST DISCOMFORT [None]
  - DIZZINESS [None]
  - EXTRASYSTOLES [None]
  - MUSCLE SPASMS [None]
  - PALPITATIONS [None]
  - QRS AXIS ABNORMAL [None]
  - SOMNOLENCE [None]
